FAERS Safety Report 12747533 (Version 1)
Quarter: 2016Q3

REPORT INFORMATION
  Report Type: Spontaneous
  Country: US (occurrence: US)
  Receive Date: 20160915
  Receipt Date: 20160915
  Transmission Date: 20161109
  Serious: No
  Sender: FDA-Public Use
  Company Number: US-JAZZ-2016-US-009841

PATIENT
  Age: 29 Year
  Sex: Male

DRUGS (14)
  1. BUPROPION HCL [Concomitant]
     Active Substance: BUPROPION HYDROCHLORIDE
  2. PROVIGIL [Concomitant]
     Active Substance: MODAFINIL
  3. NUVIGIL [Concomitant]
     Active Substance: ARMODAFINIL
  4. LIDODERM [Concomitant]
     Active Substance: LIDOCAINE
  5. XYREM [Suspect]
     Active Substance: SODIUM OXYBATE
     Dosage: DOSE ADJUSTMENTS
     Route: 048
  6. SUDAFED [Concomitant]
     Active Substance: PSEUDOEPHEDRINE HYDROCHLORIDE
  7. CLONAZEPAM. [Concomitant]
     Active Substance: CLONAZEPAM
  8. PRILOSEC [Concomitant]
     Active Substance: OMEPRAZOLE MAGNESIUM
  9. XYREM [Suspect]
     Active Substance: SODIUM OXYBATE
     Dosage: 3.5 G, BID
     Route: 048
     Dates: start: 201512
  10. FOCALIN [Concomitant]
     Active Substance: DEXMETHYLPHENIDATE HYDROCHLORIDE
  11. XYREM [Suspect]
     Active Substance: SODIUM OXYBATE
     Indication: NARCOLEPSY
     Dosage: 2 G, BID
     Route: 048
     Dates: start: 201108, end: 201110
  12. AMOXICILLIN. [Concomitant]
     Active Substance: AMOXICILLIN
  13. BUPROPION XR [Concomitant]
     Active Substance: BUPROPION
  14. LYRICA [Concomitant]
     Active Substance: PREGABALIN

REACTIONS (1)
  - Limb injury [Unknown]

NARRATIVE: CASE EVENT DATE: 201605
